FAERS Safety Report 7041212-0 (Version None)
Quarter: 2010Q4

REPORT INFORMATION
  Report Type: 
  Country: None (occurrence: None)
  Receive Date: 20101013
  Receipt Date: 20101012
  Transmission Date: 20110411
  Serious: Yes (Hospitalization)
  Sender: FDA-Public Use
  Company Number: FR-BRISTOL-MYERS SQUIBB COMPANY-15323421

PATIENT
  Age: 39 Year
  Sex: Male

DRUGS (3)
  1. REYATAZ [Suspect]
     Indication: HIV INFECTION
     Route: 048
     Dates: start: 20050308, end: 20080611
  2. NORVIR [Suspect]
     Route: 048
  3. TRUVADA [Suspect]
     Route: 048

REACTIONS (1)
  - RENAL COLIC [None]
